FAERS Safety Report 14759721 (Version 1)
Quarter: 2018Q2

REPORT INFORMATION
  Report Type: Report from Study
  Country: FR (occurrence: FR)
  Receive Date: 20180413
  Receipt Date: 20180413
  Transmission Date: 20180711
  Serious: Yes (Death)
  Sender: FDA-Public Use
  Company Number: FR-PFIZER INC-2018149631

PATIENT

DRUGS (5)
  1. ETOPOSIDE. [Suspect]
     Active Substance: ETOPOSIDE
     Indication: ACUTE PROMYELOCYTIC LEUKAEMIA
     Dosage: 200 MG/M2, CYCLIC (200 MG/M2/DAY, AS A CONTINUOUS INTRAVENOUS INFUSION FROM DAY 8 TO DAY 10)
     Route: 042
  2. CYTARABINE. [Suspect]
     Active Substance: CYTARABINE
     Dosage: 500 MG/M2, CYCLIC (500 MG/M2/DAY AS A CONTINUOUS INTRAVENOUS INFUSION ON THE SAME DAYS)
     Route: 042
  3. MITOXANTRONE [Suspect]
     Active Substance: MITOXANTRONE HYDROCHLORIDE
     Indication: ACUTE PROMYELOCYTIC LEUKAEMIA
     Dosage: 12 MG/M2, CYCLIC (12 MG/M2/DAY AS A 30-MIN INTRAVENOUS INFUSION FROM DAY 1 TO DAY 3)
     Route: 042
  4. TRETINOIN. [Suspect]
     Active Substance: TRETINOIN
     Indication: ACUTE PROMYELOCYTIC LEUKAEMIA
     Dosage: 45 MG/M2, DAILY (45 MG/M2/DAY)
  5. CYTARABINE. [Suspect]
     Active Substance: CYTARABINE
     Indication: ACUTE PROMYELOCYTIC LEUKAEMIA
     Dosage: 500 MG/M2, CYCLIC (500 MG/M2/DAY AS A CONTINUOUS INFUSION OVER THE SAME PERIOD)
     Route: 042

REACTIONS (2)
  - Bone marrow failure [Fatal]
  - Infection [Fatal]
